FAERS Safety Report 7994780-6 (Version None)
Quarter: 2011Q4

REPORT INFORMATION
  Report Type: 
  Country: None (occurrence: None)
  Receive Date: 20111220
  Receipt Date: 20111216
  Transmission Date: 20120403
  Serious: Yes (Other)
  Sender: FDA-Public Use
  Company Number: DK-ROCHE-1014931

PATIENT
  Sex: Male

DRUGS (2)
  1. ACTEMRA [Suspect]
     Dosage: RESUMED AGAIN
  2. ACTEMRA [Suspect]
     Indication: RHEUMATOID ARTHRITIS

REACTIONS (4)
  - INFECTION [None]
  - FALL [None]
  - OEDEMA PERIPHERAL [None]
  - IMPAIRED HEALING [None]
